FAERS Safety Report 17425610 (Version 7)
Quarter: 2020Q3

REPORT INFORMATION
  Report Type: Report from Study
  Country: US (occurrence: US)
  Receive Date: 20200217
  Receipt Date: 20200708
  Transmission Date: 20201102
  Serious: No
  Sender: FDA-Public Use
  Company Number: NVSC2020US041209

PATIENT
  Sex: Female

DRUGS (1)
  1. COSENTYX [Suspect]
     Active Substance: SECUKINUMAB
     Indication: PRODUCT USED FOR UNKNOWN INDICATION
     Dosage: UNK UNK, QW
     Route: 065

REACTIONS (7)
  - Contusion [Not Recovered/Not Resolved]
  - Rash [Not Recovered/Not Resolved]
  - Rash macular [Recovering/Resolving]
  - Erythema [Recovering/Resolving]
  - Memory impairment [Not Recovered/Not Resolved]
  - Inflammation [Recovering/Resolving]
  - Skin exfoliation [Not Recovered/Not Resolved]
